FAERS Safety Report 5832273-2 (Version None)
Quarter: 2008Q3

REPORT INFORMATION
  Report Type: 
  Country: None (occurrence: None)
  Receive Date: 20080804
  Receipt Date: 20080730
  Transmission Date: 20090109
  Serious: Yes (Other)
  Sender: FDA-Public Use
  Company Number: US-GENENTECH-263958

PATIENT
  Sex: Female

DRUGS (10)
  1. RAPTIVA [Suspect]
     Indication: PSORIASIS
     Dosage: 140 MG, 1/WEEK
     Route: 058
     Dates: start: 20080508, end: 20080703
  2. RAPTIVA [Suspect]
     Dosage: 140 MG, 1/WEEK
     Route: 058
     Dates: start: 20080721
  3. AVANDIA [Concomitant]
     Indication: DRUG USE FOR UNKNOWN INDICATION
  4. EFFEXOR [Concomitant]
     Indication: DRUG USE FOR UNKNOWN INDICATION
  5. PROPOXYPHENE [Concomitant]
     Indication: DRUG USE FOR UNKNOWN INDICATION
  6. OMEPRAZOLE [Concomitant]
     Indication: DRUG USE FOR UNKNOWN INDICATION
  7. GLYBURIDE [Concomitant]
     Indication: DRUG USE FOR UNKNOWN INDICATION
  8. FOLIC ACID [Concomitant]
     Indication: DRUG USE FOR UNKNOWN INDICATION
  9. ATARAX [Concomitant]
     Indication: DRUG USE FOR UNKNOWN INDICATION
  10. COZAAR [Concomitant]
     Indication: DRUG USE FOR UNKNOWN INDICATION

REACTIONS (1)
  - SALMONELLOSIS [None]
